FAERS Safety Report 25584729 (Version 2)
Quarter: 2025Q3

REPORT INFORMATION
  Report Type: Spontaneous
  Country: EU (occurrence: EU)
  Receive Date: 20250721
  Receipt Date: 20250723
  Transmission Date: 20251020
  Serious: Yes (Hospitalization, Other)
  Sender: RANBAXY
  Company Number: EU-CADRBFARM-2025335265

PATIENT
  Age: 81 Year
  Sex: Male
  Weight: 80 kg

DRUGS (12)
  1. TAMSULOSIN [Interacting]
     Active Substance: TAMSULOSIN
     Indication: Urine flow decreased
     Dosage: 0.4 MILLIGRAM, DAILY
     Route: 065
     Dates: start: 202402
  2. FINASTERIDE [Interacting]
     Active Substance: FINASTERIDE
     Indication: Prostatic disorder
     Dosage: 5 MILLIGRAM, DAILY
     Route: 048
     Dates: start: 20140101, end: 202410
  3. PANTOPRAZOLE SODIUM [Concomitant]
     Active Substance: PANTOPRAZOLE SODIUM
     Indication: Product used for unknown indication
     Dosage: 20 MILLIGRAM, DAILY, 1-0-0-0
     Route: 065
  4. APIXABAN [Concomitant]
     Active Substance: APIXABAN
     Indication: Product used for unknown indication
     Route: 065
  5. FOLIC ACID [Concomitant]
     Active Substance: FOLIC ACID
     Indication: Product used for unknown indication
     Dosage: 5 MILLIGRAM, DAILY, 1-0-0-0
     Route: 065
  6. TORSEMIDE [Concomitant]
     Active Substance: TORSEMIDE
     Indication: Product used for unknown indication
     Dosage: 20 MILLIGRAM, DAILY, 1-1-0-0
     Route: 065
  7. BISOPROLOL [Concomitant]
     Active Substance: BISOPROLOL
     Indication: Product used for unknown indication
     Route: 065
  8. CHLORHEXIDINE HYDROCHLORIDE\DEXAMETHASONE\NYSTATIN [Concomitant]
     Active Substance: CHLORHEXIDINE HYDROCHLORIDE\DEXAMETHASONE\NYSTATIN
     Indication: Product used for unknown indication
     Route: 065
  9. METAMIZOLE [Concomitant]
     Active Substance: METAMIZOLE
     Indication: Product used for unknown indication
     Dosage: 1000 MILLIGRAM, QID, 2-2-2-2
     Route: 065
  10. DAPAGLIFLOZIN [Concomitant]
     Active Substance: DAPAGLIFLOZIN
     Indication: Product used for unknown indication
     Dosage: 10 MILLIGRAM, DAILY, 1-0-0-0
     Route: 065
  11. EPLERENONE [Concomitant]
     Active Substance: EPLERENONE
     Indication: Product used for unknown indication
     Dosage: 25 MILLIGRAM, DAILY, 1-0-0-0
     Route: 065
  12. ENTRESTO [Concomitant]
     Active Substance: SACUBITRIL\VALSARTAN
     Indication: Product used for unknown indication
     Route: 065

REACTIONS (6)
  - Loss of consciousness [Recovered/Resolved]
  - Suicidal ideation [Recovered/Resolved]
  - Hallucination, auditory [Recovered/Resolved]
  - Suicide attempt [Recovered/Resolved]
  - Drug interaction [Unknown]
  - Cerebral infarction [Unknown]

NARRATIVE: CASE EVENT DATE: 20240801
